FAERS Safety Report 13278548 (Version 3)
Quarter: 2017Q2

REPORT INFORMATION
  Report Type: Report from Study
  Country: US (occurrence: US)
  Receive Date: 20170228
  Receipt Date: 20170418
  Transmission Date: 20170830
  Serious: Yes (Hospitalization, Other)
  Sender: FDA-Public Use
  Company Number: US-009507513-1702USA002866

PATIENT
  Age: 70 Year
  Sex: Male
  Weight: 97.05 kg

DRUGS (3)
  1. PEMBROLIZUMAB. [Suspect]
     Active Substance: PEMBROLIZUMAB
     Indication: NON-SMALL CELL LUNG CANCER
     Dosage: FIRST INFUSION
     Route: 042
     Dates: start: 20170111, end: 20170111
  2. PEMBROLIZUMAB. [Suspect]
     Active Substance: PEMBROLIZUMAB
     Dosage: THIRD INFUSION
     Route: 042
     Dates: start: 201702, end: 201702
  3. PEMBROLIZUMAB. [Suspect]
     Active Substance: PEMBROLIZUMAB
     Dosage: SECOND INFUSION
     Route: 042
     Dates: start: 20170201, end: 20170201

REACTIONS (12)
  - Rash [Recovering/Resolving]
  - Pyrexia [Recovering/Resolving]
  - Pneumonitis [Recovering/Resolving]
  - Alanine aminotransferase increased [Recovering/Resolving]
  - Acute respiratory failure [Recovering/Resolving]
  - Muscle spasms [Recovering/Resolving]
  - Fatigue [Unknown]
  - Aspartate aminotransferase increased [Recovering/Resolving]
  - Pruritus generalised [Not Recovered/Not Resolved]
  - Insomnia [Recovering/Resolving]
  - Pruritus [Not Recovered/Not Resolved]
  - Dyspnoea [Recovering/Resolving]

NARRATIVE: CASE EVENT DATE: 20170125
